FAERS Safety Report 5912969-4 (Version None)
Quarter: 2008Q4

REPORT INFORMATION
  Report Type: 
  Country: None (occurrence: None)
  Receive Date: 20081008
  Receipt Date: 20060221
  Transmission Date: 20090506
  Serious: Yes (Hospitalization)
  Sender: FDA-Public Use
  Company Number: FR-PFIZER INC-2006019514

PATIENT
  Sex: Male
  Weight: 72 kg

DRUGS (4)
  1. LYRICA [Suspect]
     Indication: NEURALGIA
     Dosage: DAILY DOSE:300MG
     Route: 048
     Dates: start: 20060103
  2. CIALIS [Suspect]
     Indication: ILL-DEFINED DISORDER
     Route: 065
  3. DURAGESIC-100 [Concomitant]
     Route: 062
     Dates: start: 20050817
  4. ALL OTHER THERAPEUTIC PRODUCTS [Concomitant]
     Route: 065

REACTIONS (2)
  - LUNG DISORDER [None]
  - PULMONARY OEDEMA [None]
